FAERS Safety Report 6239189-0 (Version None)
Quarter: 2009Q2

REPORT INFORMATION
  Report Type: 
  Country: None (occurrence: None)
  Receive Date: 20090618
  Receipt Date: 20090605
  Transmission Date: 20091009
  Serious: Yes (Hospitalization)
  Sender: FDA-Public Use
  Company Number: 2009000906

PATIENT
  Age: 54 Year
  Sex: Female

DRUGS (2)
  1. ERLOTINIB (ERLOTINIB) (TABLET) (ERLOTINIB) [Suspect]
     Indication: NON-SMALL CELL LUNG CANCER
     Dosage: 150 MG, QD, ORAL
     Route: 048
     Dates: start: 20090220
  2. RO4858696 [Suspect]
     Indication: NON-SMALL CELL LUNG CANCER
     Dosage: 513 MG/KG, QW, INTRAVENOUS
     Route: 042
     Dates: start: 20090220

REACTIONS (1)
  - CONVULSION [None]
